FAERS Safety Report 8433693-2 (Version None)
Quarter: 2012Q2

REPORT INFORMATION
  Report Type: 
  Country: None (occurrence: None)
  Receive Date: 20120323
  Receipt Date: 20110708
  Transmission Date: 20120825
  Serious: Yes (Hospitalization)
  Sender: FDA-Public Use
  Company Number: 163-21880-11071052

PATIENT
  Age: 77 Year

DRUGS (1)
  1. REVLIMID [Suspect]
     Indication: MULTIPLE MYELOMA
     Dosage: 5 MG, EVERY DAY FOR 14 DAYS, THEN 7 DAYS OFF, PO
     Route: 048
     Dates: start: 20110628

REACTIONS (3)
  - DIARRHOEA [None]
  - VOMITING [None]
  - DEHYDRATION [None]
